FAERS Safety Report 12647893 (Version 1)
Quarter: 2016Q3

REPORT INFORMATION
  Report Type: Spontaneous
  Country: TW (occurrence: TW)
  Receive Date: 20160812
  Receipt Date: 20160812
  Transmission Date: 20161109
  Serious: Yes (Hospitalization)
  Sender: FDA-Public Use
  Company Number: TW-PFIZER INC-2016377020

PATIENT
  Age: 7 Decade
  Sex: Female

DRUGS (2)
  1. ZYVOX [Suspect]
     Active Substance: LINEZOLID
     Indication: PERITONITIS BACTERIAL
     Dosage: 600 MG, 1X/DAY
     Route: 048
     Dates: start: 20160804
  2. ZYVOX [Suspect]
     Active Substance: LINEZOLID
     Indication: PERITONITIS BACTERIAL
     Dosage: 600 MG, 1X/DAY
     Route: 042

REACTIONS (1)
  - Hypotension [Recovering/Resolving]

NARRATIVE: CASE EVENT DATE: 20160804
